FAERS Safety Report 4703833-7 (Version None)
Quarter: 2005Q2

REPORT INFORMATION
  Report Type: 
  Country: None (occurrence: None)
  Receive Date: 20050630
  Receipt Date: 20050510
  Transmission Date: 20051028
  Serious: No
  Sender: FDA-Public Use
  Company Number: US-GLAXOSMITHKLINE-A0557945A

PATIENT
  Age: 36 Year
  Sex: Female

DRUGS (2)
  1. FLOVENT [Suspect]
     Indication: BRONCHITIS
     Route: 055
     Dates: start: 20050506
  2. AMOXICILLIN [Suspect]
     Indication: DRUG USE FOR UNKNOWN INDICATION
     Route: 065

REACTIONS (1)
  - URTICARIA [None]
